FAERS Safety Report 21918983 (Version 1)
Quarter: 2023Q1

REPORT INFORMATION
  Report Type: Spontaneous
  Country: US (occurrence: None)
  Receive Date: 20230126
  Receipt Date: 20230126
  Transmission Date: 20230418
  Serious: No
  Sender: FDA-Public Use
  Company Number: None

PATIENT
  Sex: Male

DRUGS (1)
  1. AVSOLA [Suspect]
     Active Substance: INFLIXIMAB-AXXQ
     Indication: Hidradenitis
     Dosage: 5MG PER KG  EVERY 8 WEEKS; INTRAVENOUSLY?
     Route: 042
     Dates: start: 20220330

REACTIONS (2)
  - Drug ineffective [None]
  - Therapy change [None]
